FAERS Safety Report 10481071 (Version 1)
Quarter: 2014Q3

REPORT INFORMATION
  Report Type: Spontaneous
  Country: US (occurrence: US)
  Receive Date: 20140929
  Receipt Date: 20140929
  Transmission Date: 20150326
  Serious: No
  Sender: FDA-Public Use
  Company Number: US-PFIZER INC-2014267850

PATIENT
  Age: 58 Year
  Sex: Female
  Weight: 99.77 kg

DRUGS (1)
  1. NEURONTIN [Suspect]
     Active Substance: GABAPENTIN
     Indication: DIABETIC NEUROPATHY
     Dosage: UNK (MAX POSSIBLE DOSE)

REACTIONS (1)
  - Drug ineffective [Unknown]
